FAERS Safety Report 8246251-X (Version None)
Quarter: 2012Q1

REPORT INFORMATION
  Report Type: 
  Country: None (occurrence: None)
  Receive Date: 20120330
  Receipt Date: 20120326
  Transmission Date: 20120608
  Serious: Yes (Other)
  Sender: FDA-Public Use
  Company Number: US-TEVA-330217USA

PATIENT
  Age: 57 Year
  Sex: Male

DRUGS (1)
  1. COPAXONE [Suspect]
     Route: 058

REACTIONS (1)
  - CONVULSION [None]
